FAERS Safety Report 13854232 (Version 9)
Quarter: 2019Q2

REPORT INFORMATION
  Report Type: Spontaneous
  Country: US (occurrence: US)
  Receive Date: 20170809
  Receipt Date: 20190514
  Transmission Date: 20190711
  Serious: Yes (Hospitalization)
  Sender: FDA-Public Use
  Company Number: US-ACTELION-A-US2017-157761

PATIENT
  Age: 81 Year
  Sex: Female
  Weight: 75.28 kg

DRUGS (17)
  1. OPSUMIT [Suspect]
     Active Substance: MACITENTAN
     Dosage: 10 MG, QD
     Route: 048
  2. ZOCOR [Concomitant]
     Active Substance: SIMVASTATIN
  3. OPSUMIT [Suspect]
     Active Substance: MACITENTAN
     Indication: PULMONARY HYPERTENSION
     Dosage: 10 MG, QD
     Route: 048
     Dates: start: 20170802, end: 20170831
  4. REMODULIN [Suspect]
     Active Substance: TREPROSTINIL
     Indication: PRODUCT USED FOR UNKNOWN INDICATION
     Dosage: 30 NG/KG, UNK
     Route: 051
     Dates: start: 20170706
  5. LOSARTAN. [Concomitant]
     Active Substance: LOSARTAN
     Dosage: 50 MG, QD
     Dates: start: 20161020
  6. PAXIL [Concomitant]
     Active Substance: PAROXETINE HYDROCHLORIDE
  7. SIMVASTATIN. [Concomitant]
     Active Substance: SIMVASTATIN
     Dosage: 40 MG, QD
  8. SPIRONOLACTONE. [Suspect]
     Active Substance: SPIRONOLACTONE
     Indication: PRODUCT USED FOR UNKNOWN INDICATION
     Dosage: 25 MG, UNK
     Route: 065
  9. BUMEX [Suspect]
     Active Substance: BUMETANIDE
     Indication: PRODUCT USED FOR UNKNOWN INDICATION
     Dosage: 2 MG, UNK
     Route: 065
     Dates: start: 20170813
  10. TOPROL XL [Concomitant]
     Active Substance: METOPROLOL SUCCINATE
  11. NORVASC [Concomitant]
     Active Substance: AMLODIPINE BESYLATE
  12. LEVOTHYROXINE. [Concomitant]
     Active Substance: LEVOTHYROXINE
     Dosage: 100 MCG, QD
  13. AMLODIPINE [Concomitant]
     Active Substance: AMLODIPINE BESYLATE
     Dosage: 25 MG, QD
  14. ASPIRIN. [Concomitant]
     Active Substance: ASPIRIN
     Dosage: 81 MG, QD
  15. METOPROLOL SUCCINATE. [Concomitant]
     Active Substance: METOPROLOL SUCCINATE
     Dosage: 25 MG, QD
  16. REMODULIN [Suspect]
     Active Substance: TREPROSTINIL
     Dosage: 32 NG/KG, PER MIN
     Route: 051
  17. ORENITRAM [Concomitant]
     Active Substance: TREPROSTINIL

REACTIONS (20)
  - Asthenia [Unknown]
  - Feeling abnormal [Recovered/Resolved]
  - Acute left ventricular failure [Unknown]
  - Hypoxia [Unknown]
  - Fatigue [Unknown]
  - Pneumothorax [Unknown]
  - Chronic obstructive pulmonary disease [Unknown]
  - Dyspnoea [Recovering/Resolving]
  - Decreased appetite [Unknown]
  - Coronary artery disease [Unknown]
  - Arthralgia [Unknown]
  - Abdominal discomfort [Unknown]
  - Unevaluable event [Recovered/Resolved]
  - Hypertension [Unknown]
  - Pulmonary hypertension [Unknown]
  - Pericardial effusion [Unknown]
  - Chronic kidney disease [Unknown]
  - Diarrhoea [Unknown]
  - Headache [Unknown]
  - Acute respiratory failure [Unknown]

NARRATIVE: CASE EVENT DATE: 20170813
